FAERS Safety Report 6719058-X (Version None)
Quarter: 2010Q2

REPORT INFORMATION
  Report Type: 
  Country: None (occurrence: None)
  Receive Date: 20100510
  Receipt Date: 20100510
  Transmission Date: 20101027
  Serious: No
  Sender: FDA-Public Use
  Company Number: None

PATIENT
  Age: 47 Year
  Sex: Female
  Weight: 62.5964 kg

DRUGS (1)
  1. L'OREAL LASH SERUM AS DIRECTED L'OREAL [Suspect]
     Dosage: AS DIRECTED 2X DAILY
     Dates: start: 20100401

REACTIONS (1)
  - MADAROSIS [None]
